FAERS Safety Report 9335490 (Version 1)
Quarter: 2013Q2

REPORT INFORMATION
  Report Type: Spontaneous
  Country: US (occurrence: US)
  Receive Date: 20130605
  Receipt Date: 20130605
  Transmission Date: 20140414
  Serious: No
  Sender: FDA-Public Use
  Company Number: US-PFIZER INC-2013168904

PATIENT
  Age: 78 Year
  Sex: Female
  Weight: 45.35 kg

DRUGS (5)
  1. SERTRALINE HCL [Suspect]
     Dosage: HALF PILL DAILY
     Dates: start: 2013
  2. DILTIAZEM [Concomitant]
     Dosage: 120 MG, 1X/DAY
  3. ESTRACE [Concomitant]
     Dosage: UNK
  4. CLOBETASOL PROPIONATE [Concomitant]
     Dosage: UNK
     Dates: start: 201212
  5. VITAMIN D [Concomitant]
     Dosage: UNK

REACTIONS (3)
  - Palpitations [Unknown]
  - Heart sounds abnormal [Unknown]
  - Anxiety [Unknown]
